FAERS Safety Report 14999723 (Version 1)
Quarter: 2018Q2

REPORT INFORMATION
  Report Type: Spontaneous
  Country: US (occurrence: US)
  Receive Date: 20180523
  Receipt Date: 20180523
  Transmission Date: 20180711
  Serious: Yes (Other)
  Sender: FDA-Public Use
  Company Number: None

PATIENT
  Age: 58 Year
  Sex: Female
  Weight: 72.9 kg

DRUGS (5)
  1. LORAZEPAM. [Suspect]
     Active Substance: LORAZEPAM
     Indication: ANXIETY
     Dosage: ?          QUANTITY:1 TABLET(S);?
     Route: 048
     Dates: start: 20180510, end: 20180522
  2. ATIVAN [Concomitant]
     Active Substance: LORAZEPAM
  3. EFFEXOR [Concomitant]
     Active Substance: VENLAFAXINE HYDROCHLORIDE
  4. ESTRACE [Concomitant]
     Active Substance: ESTRADIOL
  5. ATENELOL [Concomitant]
     Active Substance: ATENOLOL

REACTIONS (12)
  - Diarrhoea [None]
  - Anxiety [None]
  - Paraesthesia [None]
  - Headache [None]
  - Therapeutic response changed [None]
  - Depression [None]
  - Product substitution issue [None]
  - Neuralgia [None]
  - Burning sensation [None]
  - Withdrawal syndrome [None]
  - Product quality issue [None]
  - Economic problem [None]

NARRATIVE: CASE EVENT DATE: 20180516
